FAERS Safety Report 7822993-2 (Version None)
Quarter: 2011Q4

REPORT INFORMATION
  Report Type: 
  Country: None (occurrence: None)
  Receive Date: 20111018
  Receipt Date: 20101012
  Transmission Date: 20120403
  Serious: No
  Sender: FDA-Public Use
  Company Number: US-ASTRAZENECA-2010SE48460

PATIENT
  Age: 81 Year
  Sex: Male

DRUGS (2)
  1. SYMBICORT [Suspect]
     Indication: WHEEZING
     Dosage: 2 PUFFS BID
     Route: 055
  2. SYMBICORT [Suspect]
     Dosage: 2 PUFFS ONCE DAILY
     Route: 055

REACTIONS (3)
  - THROAT IRRITATION [None]
  - INCORRECT DOSE ADMINISTERED [None]
  - ABDOMINAL DISCOMFORT [None]
